FAERS Safety Report 25687108 (Version 1)
Quarter: 2025Q3

REPORT INFORMATION
  Report Type: Spontaneous
  Country: US (occurrence: US)
  Receive Date: 20250816
  Receipt Date: 20250816
  Transmission Date: 20251021
  Serious: Yes (Life-Threatening, Hospitalization)
  Sender: ACCORD
  Company Number: US-MLMSERVICE-20250728-PI593504-00050-2

PATIENT
  Age: 25 Year
  Sex: Female

DRUGS (1)
  1. AMLODIPINE [Suspect]
     Active Substance: AMLODIPINE BESYLATE
     Indication: Product used for unknown indication
     Route: 048

REACTIONS (6)
  - Distributive shock [Unknown]
  - Lactic acidosis [Unknown]
  - Hyperglycaemia [Unknown]
  - Nodal rhythm [Unknown]
  - Hyperdynamic left ventricle [Unknown]
  - Intentional overdose [Unknown]
